FAERS Safety Report 18847695 (Version 25)
Quarter: 2025Q3

REPORT INFORMATION
  Report Type: Report from Study
  Country: US (occurrence: US)
  Receive Date: 20210204
  Receipt Date: 20250805
  Transmission Date: 20251021
  Serious: Yes (Hospitalization, Other)
  Sender: TAKEDA
  Company Number: US-SHIRE-US201938724AA

PATIENT
  Age: 75 Year
  Sex: Female
  Weight: 48 kg

DRUGS (80)
  1. HUMAN IMMUNOGLOBULIN G [Suspect]
     Active Substance: HUMAN IMMUNOGLOBULIN G
     Indication: Immunodeficiency common variable
     Dosage: 20 GRAM, Q2WEEKS
  2. HUMAN IMMUNOGLOBULIN G [Suspect]
     Active Substance: HUMAN IMMUNOGLOBULIN G
     Indication: Primary immunodeficiency syndrome
  3. HYQVIA [Suspect]
     Active Substance: HUMAN IMMUNOGLOBULIN G\HYALURONIDASE (HUMAN RECOMBINANT)
     Indication: Immunodeficiency common variable
     Dosage: 20 GRAM, Q2WEEKS
  4. HYQVIA [Suspect]
     Active Substance: HUMAN IMMUNOGLOBULIN G\HYALURONIDASE (HUMAN RECOMBINANT)
     Indication: Primary immunodeficiency syndrome
  5. ZYRTEC [Suspect]
     Active Substance: CETIRIZINE HYDROCHLORIDE
     Indication: Product used for unknown indication
  6. ACETAMINOPHEN [Concomitant]
     Active Substance: ACETAMINOPHEN
  7. DIPHENHYDRAMINE [Concomitant]
     Active Substance: DIPHENHYDRAMINE
  8. LIDOCAINE [Concomitant]
     Active Substance: LIDOCAINE
  9. EPINEPHRINE [Concomitant]
     Active Substance: EPINEPHRINE
  10. LYRICA [Concomitant]
     Active Substance: PREGABALIN
  11. DOXYCYCLINE [Concomitant]
     Active Substance: DOXYCYCLINE
  12. ERYTHROMYCIN [Concomitant]
     Active Substance: ERYTHROMYCIN
  13. LOTEMAX [Concomitant]
     Active Substance: LOTEPREDNOL ETABONATE
  14. GABAPENTIN [Concomitant]
     Active Substance: GABAPENTIN
  15. AMITRIPTYLINE [Concomitant]
     Active Substance: AMITRIPTYLINE
  16. EVISTA [Concomitant]
     Active Substance: RALOXIFENE HYDROCHLORIDE
  17. CALCITONIN SALMON [Concomitant]
     Active Substance: CALCITONIN SALMON
  18. SINGULAIR [Concomitant]
     Active Substance: MONTELUKAST SODIUM
  19. ESTRADIOL [Concomitant]
     Active Substance: ESTRADIOL
  20. DESOXIMETASONE [Concomitant]
     Active Substance: DESOXIMETASONE
  21. BENZONATATE [Concomitant]
     Active Substance: BENZONATATE
  22. TOPIRAMATE [Concomitant]
     Active Substance: TOPIRAMATE
  23. CALCIUM [Concomitant]
     Active Substance: CALCIUM
  24. PROTOPIC [Concomitant]
     Active Substance: TACROLIMUS
  25. VITAMIN D2 [Concomitant]
     Active Substance: ERGOCALCIFEROL
  26. CYCLOBENZAPRINE [Concomitant]
     Active Substance: CYCLOBENZAPRINE
  27. FLUTICASONE PROPIONATE [Concomitant]
     Active Substance: FLUTICASONE PROPIONATE
  28. CALCIUM CARBONATE [Concomitant]
     Active Substance: CALCIUM CARBONATE
  29. VITAMIN D [Concomitant]
     Active Substance: VITAMIN D NOS
  30. PROAIR HFA [Concomitant]
     Active Substance: ALBUTEROL SULFATE
  31. FORTEO [Concomitant]
     Active Substance: TERIPARATIDE
  32. DOXYCYCLINE HYCLATE [Concomitant]
     Active Substance: DOXYCYCLINE HYCLATE
  33. AUGMENTIN [Concomitant]
     Active Substance: AMOXICILLIN\CLAVULANATE POTASSIUM
  34. NEXIUM [Concomitant]
     Active Substance: ESOMEPRAZOLE MAGNESIUM
  35. PROTONIX [Concomitant]
     Active Substance: PANTOPRAZOLE SODIUM
  36. PROVENTIL HFA [Concomitant]
     Active Substance: ALBUTEROL SULFATE
  37. FLONASE [Concomitant]
     Active Substance: FLUTICASONE PROPIONATE
  38. FIORINAL [Concomitant]
     Active Substance: ASPIRIN\BUTALBITAL\CAFFEINE
  39. CORICIDIN HBP COLD AND FLU [Concomitant]
     Active Substance: ACETAMINOPHEN\CHLORPHENIRAMINE MALEATE
  40. KEFLEX [Concomitant]
     Active Substance: CEPHALEXIN
  41. FLUTICASONE [Concomitant]
     Active Substance: FLUTICASONE
  42. ATORVASTATIN CALCIUM [Concomitant]
     Active Substance: ATORVASTATIN CALCIUM
  43. RESTASIS [Concomitant]
     Active Substance: CYCLOSPORINE
  44. SYSTANE (HYPROMELLOSE 2910 (4000 MPA.S)) [Concomitant]
     Active Substance: HYPROMELLOSE 2910 (4000 MPA.S)
  45. MIRALAX [Concomitant]
     Active Substance: POLYETHYLENE GLYCOL 3350
  46. DOCUSATE SODIUM [Concomitant]
     Active Substance: DOCUSATE SODIUM
  47. TYLENOL EXTRA STRENGTH [Concomitant]
     Active Substance: ACETAMINOPHEN
  48. AZELASTINE HYDROCHLORIDE [Concomitant]
     Active Substance: AZELASTINE HYDROCHLORIDE
  49. ENTRESTO [Concomitant]
     Active Substance: SACUBITRIL\VALSARTAN
  50. DULOXETINE HYDROCHLORIDE [Concomitant]
     Active Substance: DULOXETINE HYDROCHLORIDE
  51. ERYTHROMYCIN [Concomitant]
     Active Substance: ERYTHROMYCIN
  52. PANTOPRAZOLE SODIUM [Concomitant]
     Active Substance: PANTOPRAZOLE SODIUM
  53. TACROLIMUS [Concomitant]
     Active Substance: TACROLIMUS
  54. BUTALBITAL, ASPIRIN, AND CAFFEINE [Concomitant]
     Active Substance: ASPIRIN\BUTALBITAL\CAFFEINE
  55. CALCIUM\CHOLECALCIFEROL [Concomitant]
     Active Substance: CALCIUM\CHOLECALCIFEROL
  56. EPIPEN [Concomitant]
     Active Substance: EPINEPHRINE
  57. ERGOCALCIFEROL [Concomitant]
     Active Substance: ERGOCALCIFEROL
  58. CETIRIZINE HCL [Concomitant]
     Active Substance: CETIRIZINE HYDROCHLORIDE
  59. BACITRACIN [Concomitant]
     Active Substance: BACITRACIN
  60. CEPHALEXIN [Concomitant]
     Active Substance: CEPHALEXIN
  61. METOPROLOL SUCCINATE [Concomitant]
     Active Substance: METOPROLOL SUCCINATE
  62. NITROGLYCERIN [Concomitant]
     Active Substance: NITROGLYCERIN
  63. VENTOLIN HFA [Concomitant]
     Active Substance: ALBUTEROL SULFATE
  64. CALCIUM\VITAMIN D [Concomitant]
     Active Substance: CALCIUM\VITAMIN D
  65. ASPIRIN [Concomitant]
     Active Substance: ASPIRIN
  66. MUCINEX [Concomitant]
     Active Substance: GUAIFENESIN
  67. MONTELUKAST SODIUM [Concomitant]
     Active Substance: MONTELUKAST SODIUM
  68. MUPIROCIN [Concomitant]
     Active Substance: MUPIROCIN
  69. NALTREXONE HYDROCHLORIDE [Concomitant]
     Active Substance: NALTREXONE HYDROCHLORIDE
  70. DIPHENHYDRAMINE HYDROCHLORIDE [Concomitant]
     Active Substance: DIPHENHYDRAMINE HYDROCHLORIDE
  71. BUTALBITAL, ACETAMINOPHEN, AND CAFFEINE [Concomitant]
     Active Substance: ACETAMINOPHEN\BUTALBITAL\CAFFEINE
  72. RALOXIFENE [Concomitant]
     Active Substance: RALOXIFENE
  73. HYDROCORTISONE ACETATE [Concomitant]
     Active Substance: HYDROCORTISONE ACETATE
  74. RECLAST [Concomitant]
     Active Substance: ZOLEDRONIC ACID
  75. AMITRIPTYLINE HYDROCHLORIDE [Concomitant]
     Active Substance: AMITRIPTYLINE HYDROCHLORIDE
  76. CYCLOBENZAPRINE HYDROCHLORIDE [Concomitant]
     Active Substance: CYCLOBENZAPRINE HYDROCHLORIDE
  77. FISH OIL [Concomitant]
     Active Substance: FISH OIL
  78. NYSTATIN AND TRIAMCINOLONE [Concomitant]
     Active Substance: NYSTATIN\TRIAMCINOLONE ACETONIDE
  79. ASPIRIN [Concomitant]
     Active Substance: ASPIRIN
  80. Macular Health Formula [Concomitant]

REACTIONS (30)
  - Pelvic fracture [Recovering/Resolving]
  - Rib fracture [Recovering/Resolving]
  - Injury [Recovering/Resolving]
  - Fall [Recovering/Resolving]
  - Neck pain [Not Recovered/Not Resolved]
  - Multiple fractures [Unknown]
  - Melatonin deficiency [Unknown]
  - Pneumothorax [Unknown]
  - Cardiomyopathy [Unknown]
  - Spinal fracture [Unknown]
  - Malignant melanoma [Unknown]
  - Cellulitis [Recovered/Resolved]
  - Pathological fracture [Unknown]
  - Gastrointestinal obstruction [Recovered/Resolved]
  - Squamous cell carcinoma of skin [Recovered/Resolved]
  - Back pain [Not Recovered/Not Resolved]
  - Product dose omission issue [Unknown]
  - Eye disorder [Unknown]
  - Drug eruption [Unknown]
  - COVID-19 [Not Recovered/Not Resolved]
  - Eye infection [Unknown]
  - Incorrect drug administration rate [Unknown]
  - Incorrect dose administered [Unknown]
  - Product use issue [Unknown]
  - Fungal infection [Unknown]
  - Localised infection [Unknown]
  - Drug hypersensitivity [Unknown]
  - Limb injury [Unknown]
  - Cough [Unknown]
  - Osteoporosis [Recovered/Resolved]

NARRATIVE: CASE EVENT DATE: 20190906
